FAERS Safety Report 7636440-7 (Version None)
Quarter: 2011Q3

REPORT INFORMATION
  Report Type: 
  Country: None (occurrence: None)
  Receive Date: 20110726
  Receipt Date: 20110725
  Transmission Date: 20111222
  Serious: Yes (Hospitalization)
  Sender: FDA-Public Use
  Company Number: US-BRISTOL-MYERS SQUIBB COMPANY-15921281

PATIENT
  Age: 64 Year
  Sex: Male
  Weight: 79 kg

DRUGS (17)
  1. CARBOPLATIN [Suspect]
     Indication: NON-SMALL CELL LUNG CANCER
     Dosage: LAST TREATMENT:11JUL11 1DF:AUC=2 HELD BY 3 DAYS
     Dates: start: 20110606
  2. ZOFRAN [Concomitant]
  3. MORPHINE SULFATE [Concomitant]
  4. VIAGRA [Concomitant]
  5. AMBIEN [Concomitant]
  6. DURAGESIC-100 [Concomitant]
  7. PROCHLORPERAZINE MALEATE [Concomitant]
  8. MAALOX [Concomitant]
  9. BENADRYL [Concomitant]
  10. LANSOPRAZOLE [Concomitant]
  11. SYMBICORT [Concomitant]
  12. CARAFATE [Concomitant]
  13. FOLIC ACID [Concomitant]
  14. TAXOL [Suspect]
     Indication: NON-SMALL CELL LUNG CANCER
     Dosage: LAST TREATMENT:11JUL11 HELD BY 3 DAYS
     Dates: start: 20110606
  15. AUGMENTIN '125' [Concomitant]
  16. NYSTATIN MOUTHWASH [Concomitant]
  17. SPIRIVA [Concomitant]

REACTIONS (3)
  - DECREASED APPETITE [None]
  - OESOPHAGITIS [None]
  - DYSPHAGIA [None]
